FAERS Safety Report 10757066 (Version 1)
Quarter: 2015Q1

REPORT INFORMATION
  Report Type: Spontaneous
  Country: US (occurrence: US)
  Receive Date: 20150203
  Receipt Date: 20150203
  Transmission Date: 20150721
  Serious: No
  Sender: FDA-Public Use
  Company Number: US-B.I. PHARMACEUTICALS,INC./RIDGEFIELD-2015-BI-03432BP

PATIENT
  Age: 75 Year
  Sex: Female

DRUGS (3)
  1. ZANTAC [Suspect]
     Active Substance: RANITIDINE HYDROCHLORIDE
     Indication: DYSPEPSIA
     Dosage: ACID REDUCER
     Route: 048
     Dates: start: 201411, end: 20150110
  2. ZANTAC [Suspect]
     Active Substance: RANITIDINE HYDROCHLORIDE
     Dosage: 450 MG
     Route: 048
     Dates: start: 201411
  3. ZANTAC [Suspect]
     Active Substance: RANITIDINE HYDROCHLORIDE
     Dosage: ACID REDUCER
     Route: 048
     Dates: start: 20150118

REACTIONS (10)
  - Rash [Recovered/Resolved]
  - Diarrhoea [Recovered/Resolved]
  - Hiatus hernia [Not Recovered/Not Resolved]
  - Pain in extremity [Recovered/Resolved]
  - Diarrhoea [Not Recovered/Not Resolved]
  - Swelling [Recovered/Resolved]
  - Overdose [Not Recovered/Not Resolved]
  - Chronic gastritis [Not Recovered/Not Resolved]
  - Incorrect drug administration duration [Not Recovered/Not Resolved]
  - Bone pain [Not Recovered/Not Resolved]

NARRATIVE: CASE EVENT DATE: 201411
